FAERS Safety Report 13323678 (Version 2)
Quarter: 2017Q2

REPORT INFORMATION
  Report Type: Spontaneous
  Country: AU (occurrence: AU)
  Receive Date: 20170308
  Receipt Date: 20170605
  Transmission Date: 20170830
  Serious: Yes (Other)
  Sender: FDA-Public Use
  Company Number: AU-009507513-1702AUS011752

PATIENT
  Sex: Female

DRUGS (4)
  1. AVANZA [Concomitant]
     Active Substance: MIRTAZAPINE
     Indication: ANXIETY
     Dosage: 30 MG (1 TABLET) DAILY ONLY, BEFORE BED
     Route: 048
  2. IMPLANON [Suspect]
     Active Substance: ETONOGESTREL
     Indication: CONTRACEPTION
     Dosage: 1 IMPLANT FOR 3 YEARS, IN THE LEFT ARM
     Route: 058
     Dates: start: 20101101, end: 20170511
  3. CHAMPIX [Concomitant]
     Active Substance: VARENICLINE TARTRATE
     Dosage: AS DIRECTED
     Route: 048
  4. PANADEINE FORTE [Concomitant]
     Active Substance: ACETAMINOPHEN\CODEINE PHOSPHATE
     Dosage: 2 TABLETS, FOUR TIMES A DAY
     Route: 048

REACTIONS (8)
  - Benign neoplasm of cervix uteri [Unknown]
  - Premenstrual syndrome [Unknown]
  - Device deployment issue [Recovered/Resolved]
  - Device dislocation [Recovered/Resolved]
  - Incorrect drug administration duration [Unknown]
  - Implant site hypersensitivity [Unknown]
  - Device difficult to use [Recovered/Resolved]
  - Complication associated with device [Recovered/Resolved]

NARRATIVE: CASE EVENT DATE: 20101101
